FAERS Safety Report 9570169 (Version 2)
Quarter: 2013Q3

REPORT INFORMATION
  Report Type: Spontaneous
  Country: US (occurrence: US)
  Receive Date: 20130930
  Receipt Date: 20130930
  Transmission Date: 20140515
  Serious: No
  Sender: FDA-Public Use
  Company Number: US-AMGEN-USASP2013061472

PATIENT
  Age: 74 Year
  Sex: Female
  Weight: 69.84 kg

DRUGS (12)
  1. ENBREL [Suspect]
     Indication: PRODUCT USED FOR UNKNOWN INDICATION
     Dosage: 50 MG, QWK
     Route: 058
  2. PREDNISONE [Concomitant]
     Dosage: 1 MG, UNK
  3. LIPITOR [Concomitant]
     Dosage: 20 MG, UNK
  4. LANTUS [Concomitant]
     Dosage: UNK, SOLOSTAR
  5. METHOCARBAMOL [Concomitant]
     Dosage: 500 MG, UNK
  6. PLAVIX [Concomitant]
     Dosage: 75 MG, UNK
  7. ZETIA [Concomitant]
     Dosage: 10 MG, UNK
  8. ANTARA [Concomitant]
     Indication: RHEUMATOID ARTHRITIS
     Dosage: 43 MG, UNK
  9. METHOTREXATE [Concomitant]
     Dosage: 20 MG, UNK
  10. VITAMIN D                          /00107901/ [Concomitant]
     Dosage: 50000 UNK, QWK
     Route: 048
  11. ATENOLOL [Concomitant]
     Dosage: UNK
  12. LOSARTAN [Concomitant]
     Dosage: UNK

REACTIONS (8)
  - Headache [Unknown]
  - Injection site bruising [Unknown]
  - Injection site pain [Recovered/Resolved]
  - Injection site warmth [Unknown]
  - Injection site erythema [Unknown]
  - Injection site swelling [Recovering/Resolving]
  - Injection site discolouration [Unknown]
  - Injection site reaction [Unknown]
